FAERS Safety Report 16894078 (Version 1)
Quarter: 2019Q4

REPORT INFORMATION
  Report Type: Spontaneous
  Country: US (occurrence: US)
  Receive Date: 20191008
  Receipt Date: 20191008
  Transmission Date: 20200122
  Serious: No
  Sender: FDA-Public Use
  Company Number: US-INDIVIOR US-INDV-113126-2018

PATIENT
  Age: 50 Year
  Sex: Male

DRUGS (4)
  1. SUBOXONE [Suspect]
     Active Substance: BUPRENORPHINE HYDROCHLORIDE\NALOXONE HYDROCHLORIDE
     Indication: DRUG DEPENDENCE
     Dosage: DOSING VARIES FROM HALF A MG UP TO 8MG A DAY
     Route: 065
  2. SUBOXONE [Suspect]
     Active Substance: BUPRENORPHINE HYDROCHLORIDE\NALOXONE HYDROCHLORIDE
     Dosage: MAY TAKE FULL 8MG IN A DAY BY CUTTING INTO FOUR SLIVERS, BY TAKING A SMALL PIECE EVERY
     Route: 065
  3. SUBOXONE [Suspect]
     Active Substance: BUPRENORPHINE HYDROCHLORIDE\NALOXONE HYDROCHLORIDE
     Dosage: QUARTER OF A FILM PER DAY FOR A YEAR
     Route: 065
  4. SUBOXONE [Suspect]
     Active Substance: BUPRENORPHINE HYDROCHLORIDE\NALOXONE HYDROCHLORIDE
     Indication: DRUG DEPENDENCE
     Dosage: UNK, CUT INTO SMALL PIECES
     Route: 065

REACTIONS (12)
  - Frustration tolerance decreased [Unknown]
  - Wrong technique in product usage process [Unknown]
  - Drug dependence [Unknown]
  - Inappropriate schedule of product administration [Unknown]
  - Muscle spasms [Unknown]
  - Intentional underdose [Unknown]
  - Depression [Unknown]
  - Abdominal pain upper [Unknown]
  - Therapeutic response unexpected [Unknown]
  - Hyperhidrosis [Unknown]
  - Discomfort [Unknown]
  - Drug withdrawal syndrome [Recovered/Resolved]
